FAERS Safety Report 5949645-8 (Version None)
Quarter: 2008Q4

REPORT INFORMATION
  Report Type: 
  Country: None (occurrence: None)
  Receive Date: 20081112
  Receipt Date: 20081103
  Transmission Date: 20090506
  Serious: Yes (Hospitalization, Other)
  Sender: FDA-Public Use
  Company Number: US-JNJFOC-20080902577

PATIENT
  Sex: Male

DRUGS (1)
  1. POLY CITRA  SYRUP [Suspect]
     Indication: CYSTINURIA
     Dosage: 5TSP
     Route: 048

REACTIONS (6)
  - CYSTINURIA [None]
  - GOUT [None]
  - HYPERTENSION [None]
  - RENAL DISORDER [None]
  - RENAL IMPAIRMENT [None]
  - RENAL STONE REMOVAL [None]
